FAERS Safety Report 8611923 (Version 3)
Quarter: 2013Q3

REPORT INFORMATION
  Report Type: Report from Study
  Country: JP (occurrence: JP)
  Receive Date: 20120613
  Receipt Date: 20130705
  Transmission Date: 20140515
  Serious: Yes (Other)
  Sender: FDA-Public Use
  Company Number: PHHY2012JP046819

PATIENT
  Age: 39 Year
  Sex: Female

DRUGS (4)
  1. FTY 720 [Suspect]
     Indication: MULTIPLE SCLEROSIS
     Dosage: 0.5 MG, QD
     Route: 048
     Dates: start: 20120515, end: 20120516
  2. LYRICA [Concomitant]
     Dosage: 450 MG, UNK
     Route: 048
  3. LENDORMIN [Concomitant]
     Dosage: 0.25 MG, UNK
     Route: 048
  4. IDOMETHINE [Concomitant]
     Dosage: UNK UKN, UNK
     Route: 061

REACTIONS (2)
  - Atrioventricular block second degree [Recovered/Resolved]
  - Heart rate decreased [Unknown]
